FAERS Safety Report 10174174 (Version 1)
Quarter: 2014Q2

REPORT INFORMATION
  Report Type: Spontaneous
  Country: US (occurrence: None)
  Receive Date: 20140514
  Receipt Date: 20140514
  Transmission Date: 20141212
  Serious: No
  Sender: FDA-Public Use
  Company Number: None

PATIENT
  Age: 24 Year
  Sex: Female
  Weight: 90.27 kg

DRUGS (1)
  1. NASAL PUMP MIST 0.05% REXALL [Suspect]
     Indication: PULMONARY CONGESTION

REACTIONS (4)
  - Tremor [None]
  - Migraine [None]
  - Vomiting [None]
  - Nasal discomfort [None]
